FAERS Safety Report 6760127-6 (Version None)
Quarter: 2010Q2

REPORT INFORMATION
  Report Type: 
  Country: None (occurrence: None)
  Receive Date: 20100608
  Receipt Date: 20100528
  Transmission Date: 20101027
  Serious: Yes (Other)
  Sender: FDA-Public Use
  Company Number: PHHY2010US35422

PATIENT
  Sex: Male

DRUGS (5)
  1. MIACALCIN [Suspect]
     Dosage: UNK
     Route: 045
     Dates: start: 20090801
  2. FORTEO [Suspect]
     Dosage: UNK
  3. CALCIUM CARBONATE [Concomitant]
  4. VITAMIN D [Concomitant]
  5. FOSAMAX [Concomitant]

REACTIONS (5)
  - CHEST PAIN [None]
  - DRUG INEFFECTIVE [None]
  - NASOPHARYNGITIS [None]
  - SNEEZING [None]
  - SPINAL FRACTURE [None]
